FAERS Safety Report 6412533-7 (Version None)
Quarter: 2009Q4

REPORT INFORMATION
  Report Type: 
  Country: None (occurrence: None)
  Receive Date: 20091023
  Receipt Date: 20090824
  Transmission Date: 20100525
  Serious: No
  Sender: FDA-Public Use
  Company Number: US-BRISTOL-MYERS SQUIBB COMPANY-14738959

PATIENT
  Age: 39 Year
  Sex: Male

DRUGS (6)
  1. KENALOG-40 [Suspect]
     Indication: STATUS ASTHMATICUS
     Dosage: LOT NO: 8E38460, EXP DATE APR2010
     Route: 042
     Dates: start: 20090812
  2. PREDNISONE [Concomitant]
  3. ALBUTEROL [Concomitant]
     Dosage: 1 DF- MOI
  4. ADVAIR DISKUS 100/50 [Concomitant]
     Dosage: 1 DF- 250/50
     Dates: start: 20090101, end: 20090101
  5. XOPENEX [Concomitant]
  6. PULMICORT [Concomitant]

REACTIONS (2)
  - MEDICATION ERROR [None]
  - NO ADVERSE EVENT [None]
